FAERS Safety Report 4952324-7 (Version None)
Quarter: 2006Q1

REPORT INFORMATION
  Report Type: 
  Country: None (occurrence: None)
  Receive Date: 20060131
  Receipt Date: 20041207
  Transmission Date: 20060701
  Serious: Yes (Other)
  Sender: FDA-Public Use
  Company Number: WAES 0412USA00929

PATIENT
  Sex: Male

DRUGS (1)
  1. INVANZ [Suspect]
     Dosage: 1.0 GM DAILY
     Dates: start: 20041116, end: 20041123

REACTIONS (1)
  - CONVULSION [None]
